FAERS Safety Report 11831279 (Version 2)
Quarter: 2015Q4

REPORT INFORMATION
  Report Type: Spontaneous
  Country: US (occurrence: US)
  Receive Date: 20151214
  Receipt Date: 20151220
  Transmission Date: 20160305
  Serious: No
  Sender: FDA-Public Use
  Company Number: US-009507513-1512USA003167

PATIENT
  Age: 15 Year
  Sex: Female
  Weight: 81.63 kg

DRUGS (3)
  1. NEXPLANON [Suspect]
     Active Substance: ETONOGESTREL
     Indication: CONTRACEPTION
     Dosage: 1 DF, 3 YEAR IMPLANT
     Route: 059
     Dates: start: 20151203
  2. NEXPLANON [Suspect]
     Active Substance: ETONOGESTREL
     Indication: MENORRHAGIA
  3. ZOLOFT [Concomitant]
     Active Substance: SERTRALINE HYDROCHLORIDE

REACTIONS (1)
  - Implant site pain [Unknown]

NARRATIVE: CASE EVENT DATE: 20151203
